FAERS Safety Report 16256195 (Version 2)
Quarter: 2019Q2

REPORT INFORMATION
  Report Type: Spontaneous
  Country: US (occurrence: US)
  Receive Date: 20190430
  Receipt Date: 20190626
  Transmission Date: 20190711
  Serious: No
  Sender: FDA-Public Use
  Company Number: US-ELI_LILLY_AND_COMPANY-US201904001158

PATIENT

DRUGS (1)
  1. EMGALITY [Suspect]
     Active Substance: GALCANEZUMAB-GNLM
     Indication: PRODUCT USED FOR UNKNOWN INDICATION
     Dosage: UNK UNK, UNKNOWN
     Route: 065
     Dates: start: 20181031, end: 201903

REACTIONS (11)
  - Malaise [Unknown]
  - Nasal congestion [Unknown]
  - Sluggishness [Unknown]
  - Migraine [Unknown]
  - Feeling abnormal [Unknown]
  - Immune system disorder [Unknown]
  - Fatigue [Unknown]
  - Peripheral swelling [Unknown]
  - Weight increased [Unknown]
  - Headache [Unknown]
  - Drug ineffective [Unknown]
